FAERS Safety Report 12733379 (Version 2)
Quarter: 2016Q4

REPORT INFORMATION
  Report Type: Spontaneous
  Country: US (occurrence: US)
  Receive Date: 20160912
  Receipt Date: 20161110
  Transmission Date: 20170207
  Serious: Yes (Death, Hospitalization)
  Sender: FDA-Public Use
  Company Number: US-JNJFOC-20160805525

PATIENT
  Age: 79 Year
  Sex: Male

DRUGS (6)
  1. PLAVIX [Suspect]
     Active Substance: CLOPIDOGREL BISULFATE
     Indication: PERIPHERAL VASCULAR DISORDER
     Route: 065
     Dates: end: 201509
  2. XARELTO [Suspect]
     Active Substance: RIVAROXABAN
     Indication: PERIPHERAL VASCULAR DISORDER
     Route: 048
     Dates: start: 201505, end: 20150922
  3. XARELTO [Suspect]
     Active Substance: RIVAROXABAN
     Indication: THROMBOSIS PROPHYLAXIS
     Route: 048
     Dates: start: 201505, end: 20150922
  4. ASPIRIN. [Suspect]
     Active Substance: ASPIRIN
     Indication: PRODUCT USED FOR UNKNOWN INDICATION
     Route: 065
  5. XARELTO [Suspect]
     Active Substance: RIVAROXABAN
     Indication: ATRIAL FIBRILLATION
     Route: 048
     Dates: start: 201505, end: 20150922
  6. XARELTO [Suspect]
     Active Substance: RIVAROXABAN
     Indication: CEREBROVASCULAR ACCIDENT PROPHYLAXIS
     Route: 048
     Dates: start: 201505, end: 20150922

REACTIONS (2)
  - Septic shock [Fatal]
  - Gastrointestinal haemorrhage [Unknown]

NARRATIVE: CASE EVENT DATE: 201509
